FAERS Safety Report 4463145-6 (Version None)
Quarter: 2004Q3

REPORT INFORMATION
  Report Type: 
  Country: None (occurrence: None)
  Receive Date: 20040928
  Receipt Date: 20040920
  Transmission Date: 20050211
  Serious: Yes (Other)
  Sender: FDA-Public Use
  Company Number: NUBN20040016

PATIENT
  Age: 1 Day
  Sex: Male

DRUGS (1)
  1. NUBAIN [Suspect]
     Indication: LABOUR PAIN
     Dosage: PLACENTAL
     Route: 064
     Dates: start: 19940907, end: 19940907

REACTIONS (4)
  - DRUG EXPOSURE DURING PREGNANCY [None]
  - NEONATAL APNOEIC ATTACK [None]
  - NEONATAL RESPIRATORY DEPRESSION [None]
  - PSYCHOMOTOR RETARDATION [None]
